FAERS Safety Report 20596771 (Version 1)
Quarter: 2022Q1

REPORT INFORMATION
  Report Type: Spontaneous
  Country: US (occurrence: None)
  Receive Date: 20220315
  Receipt Date: 20220315
  Transmission Date: 20220424
  Serious: No
  Sender: FDA-Public Use
  Company Number: None

PATIENT
  Sex: Female

DRUGS (13)
  1. CAPECITABINE [Suspect]
     Active Substance: CAPECITABINE
     Indication: Colon cancer
     Dosage: FREQUENCY : TWICE A DAY;?OTHER ROUTE : 7DAYS ON/7OFF;?
     Route: 050
  2. ALPRAZOLAM [Concomitant]
     Active Substance: ALPRAZOLAM
  3. CAPECITABINE [Concomitant]
     Active Substance: CAPECITABINE
  4. DULOXETINE [Concomitant]
     Active Substance: DULOXETINE
  5. GLIMEPIRIDE [Concomitant]
     Active Substance: GLIMEPIRIDE
  6. METFORMIN [Concomitant]
     Active Substance: METFORMIN HYDROCHLORIDE
  7. Modefinil [Concomitant]
  8. OLMESARTAN [Concomitant]
     Active Substance: OLMESARTAN
  9. presugrel [Concomitant]
  10. SOTALOL [Concomitant]
     Active Substance: SOTALOL
  11. TRAMADOL [Concomitant]
     Active Substance: TRAMADOL
  12. vitamin D3 (SYN) [Concomitant]
  13. ZOLPIDEM [Concomitant]
     Active Substance: ZOLPIDEM TARTRATE

REACTIONS (1)
  - Disease progression [None]
